FAERS Safety Report 6155740-3 (Version None)
Quarter: 2009Q2

REPORT INFORMATION
  Report Type: 
  Country: None (occurrence: None)
  Receive Date: 20090415
  Receipt Date: 20090406
  Transmission Date: 20091009
  Serious: Yes (Other)
  Sender: FDA-Public Use
  Company Number: B0570017A

PATIENT
  Sex: Female

DRUGS (4)
  1. AVANDIA [Suspect]
     Dosage: 4MG PER DAY
     Route: 048
     Dates: start: 20020801, end: 20081001
  2. DIAPREL [Concomitant]
     Dosage: 1TAB TWICE PER DAY
     Route: 065
     Dates: start: 20010101
  3. SIOFOR [Concomitant]
     Dosage: 1TAB THREE TIMES PER DAY
     Route: 065
     Dates: start: 20020101
  4. UNKNOWN DRUG [Concomitant]
     Route: 065

REACTIONS (16)
  - BLOOD CHOLESTEROL INCREASED [None]
  - BLOOD PRESSURE INCREASED [None]
  - BLOOD TRIGLYCERIDES INCREASED [None]
  - CARDIAC FAILURE [None]
  - CHEST PAIN [None]
  - CONSTIPATION [None]
  - COUGH [None]
  - DIABETES MELLITUS INADEQUATE CONTROL [None]
  - DYSPNOEA [None]
  - HEADACHE [None]
  - INCREASED APPETITE [None]
  - OEDEMA PERIPHERAL [None]
  - ORTHOPNOEA [None]
  - POOR QUALITY SLEEP [None]
  - VERTIGO [None]
  - WEIGHT INCREASED [None]
